FAERS Safety Report 6299812-1 (Version None)
Quarter: 2009Q3

REPORT INFORMATION
  Report Type: 
  Country: None (occurrence: None)
  Receive Date: 20090806
  Receipt Date: 20090731
  Transmission Date: 20100115
  Serious: Yes (Life-Threatening)
  Sender: FDA-Public Use
  Company Number: CH-AVENTIS-200917905GDDC

PATIENT
  Age: 77 Year
  Sex: Female
  Weight: 60 kg

DRUGS (4)
  1. ARAVA [Suspect]
     Indication: RHEUMATOID ARTHRITIS
     Route: 048
     Dates: start: 20080901, end: 20081130
  2. ARAVA [Suspect]
     Dates: start: 20081201, end: 20090228
  3. ARAVA [Suspect]
     Dates: start: 20090301
  4. FOSAMAX [Concomitant]
     Indication: OSTEOPOROSIS
     Route: 048
     Dates: start: 20050909

REACTIONS (1)
  - NON-HODGKIN'S LYMPHOMA [None]
